FAERS Safety Report 7280397-8 (Version None)
Quarter: 2011Q1

REPORT INFORMATION
  Report Type: 
  Country: None (occurrence: None)
  Receive Date: 20110208
  Receipt Date: 20110127
  Transmission Date: 20110831
  Serious: Yes (Hospitalization, Other)
  Sender: FDA-Public Use
  Company Number: US-ELI_LILLY_AND_COMPANY-US201008004663

PATIENT
  Sex: Male
  Weight: 131.7 kg

DRUGS (16)
  1. CONCERTA [Concomitant]
     Dosage: 72 MG, DAILY (1/D)
     Route: 048
  2. OMEGA-3 FATTY ACIDS [Concomitant]
     Dosage: 1200 MG, DAILY (1/D)
     Route: 048
  3. BYETTA [Suspect]
     Dosage: 5 UG, 2/D
     Route: 065
     Dates: start: 20080404, end: 20080818
  4. PRILOSEC [Concomitant]
     Indication: DYSPEPSIA
     Dosage: 20 MG, DAILY (1/D)
     Route: 048
     Dates: start: 20071001, end: 20090401
  5. TRICOR [Concomitant]
     Indication: LIPIDS
     Dosage: 145 MG, DAILY (1/D)
     Route: 048
     Dates: start: 20080717
  6. LISINOPRIL [Concomitant]
     Indication: BLOOD PRESSURE
  7. PROSCAR /USA/ [Concomitant]
     Dosage: 5 MG, DAILY (1/D)
     Route: 048
  8. GLUCOPHAGE [Concomitant]
     Indication: DIABETES MELLITUS
     Dosage: 1000 MG, 2/D
     Route: 048
     Dates: start: 20071002
  9. PRINIVIL [Concomitant]
     Dosage: 20 MG, DAILY (1/D)
     Route: 048
  10. ALLOPURINOL [Concomitant]
     Indication: PROPHYLAXIS
     Dosage: 100 MG, 2/D
     Route: 048
     Dates: start: 20080513
  11. ASPIRIN /USA/ [Concomitant]
     Dosage: 325 MG, DAILY (1/D)
     Route: 048
  12. METFORMIN HCL [Concomitant]
     Indication: DIABETES MELLITUS
     Route: 048
     Dates: start: 20071002
  13. METOPROLOL TARTRATE [Concomitant]
     Indication: BLOOD PRESSURE
     Dosage: UNK, UNK
     Dates: start: 20071002
  14. OMEPRAZOLE [Concomitant]
     Indication: DYSPEPSIA
     Dates: start: 20071001, end: 20090401
  15. HYDROCHLOROTHIAZIDE [Concomitant]
     Indication: BLOOD PRESSURE
     Dosage: 25 MG, DAILY (1/D)
     Route: 048
     Dates: start: 20080513
  16. TOPROL-XL [Concomitant]
     Dosage: 200 MG, DAILY (1/D)
     Route: 048

REACTIONS (8)
  - HERNIA [None]
  - PANCREATITIS ACUTE [None]
  - DUODENITIS [None]
  - SCAR [None]
  - CHOLECYSTITIS [None]
  - HEPATIC STEATOSIS [None]
  - RENAL FAILURE ACUTE [None]
  - DYSPEPSIA [None]
